FAERS Safety Report 8243303-5 (Version None)
Quarter: 2012Q1

REPORT INFORMATION
  Report Type: 
  Country: None (occurrence: None)
  Receive Date: 20120329
  Receipt Date: 20120315
  Transmission Date: 20120608
  Serious: Yes (Death)
  Sender: FDA-Public Use
  Company Number: US-ROCHE-1035020

PATIENT
  Sex: Female

DRUGS (10)
  1. BACTRIM DS [Concomitant]
     Route: 048
  2. TEMODAR [Concomitant]
     Route: 048
     Dates: start: 20080226, end: 20080902
  3. SYNTHROID [Concomitant]
     Route: 048
     Dates: start: 20071101
  4. AVASTIN [Suspect]
     Indication: BRAIN NEOPLASM
     Route: 042
     Dates: start: 20080822, end: 20081115
  5. DEXAMETHASONE [Suspect]
     Indication: BRAIN NEOPLASM
     Route: 048
     Dates: start: 20071101
  6. KEPPRA [Concomitant]
     Indication: CONVULSION
     Route: 048
  7. NEXIUM [Concomitant]
     Dates: start: 20080901
  8. TEMODAR [Concomitant]
     Indication: BRAIN NEOPLASM
     Route: 048
     Dates: start: 20070107, end: 20070208
  9. TEMODAR [Concomitant]
     Route: 048
     Dates: start: 20080121, end: 20080126
  10. PROTONIX [Concomitant]
     Route: 048
     Dates: start: 20071101, end: 20080901

REACTIONS (2)
  - ULCER [None]
  - DEATH [None]
